FAERS Safety Report 19782278 (Version 1)
Quarter: 2021Q3

REPORT INFORMATION
  Report Type: Spontaneous
  Country: UY (occurrence: UY)
  Receive Date: 20210902
  Receipt Date: 20210902
  Transmission Date: 20211014
  Serious: Yes (Other)
  Sender: FDA-Public Use
  Company Number: UY-FERRINGPH-2021FE05543

PATIENT
  Sex: Female

DRUGS (2)
  1. SPORT DRINK [Concomitant]
     Active Substance: UNSPECIFIED INGREDIENT
     Route: 065
  2. PICOPREP [Suspect]
     Active Substance: ANHYDROUS CITRIC ACID\MAGNESIUM OXIDE\SODIUM PICOSULFATE
     Indication: PRODUCT USED FOR UNKNOWN INDICATION
     Dosage: UNK
     Route: 065

REACTIONS (2)
  - Fracture [Unknown]
  - Syncope [Unknown]
